FAERS Safety Report 19718934 (Version 6)
Quarter: 2022Q4

REPORT INFORMATION
  Report Type: Spontaneous
  Country: US (occurrence: US)
  Receive Date: 20210818
  Receipt Date: 20221010
  Transmission Date: 20230112
  Serious: Yes (Other)
  Sender: FDA-Public Use
  Company Number: US-HORIZON THERAPEUTICS-HZN-2021-003056

PATIENT

DRUGS (2)
  1. TEPEZZA [Suspect]
     Active Substance: TEPROTUMUMAB-TRBW
     Indication: Endocrine ophthalmopathy
     Dosage: 1ST INFUSION
     Route: 042
  2. AIMOVIG [Suspect]
     Active Substance: ERENUMAB-AOOE
     Indication: Immunosuppression
     Dosage: UNK
     Route: 065

REACTIONS (9)
  - Eye irritation [Unknown]
  - Blood insulin increased [Unknown]
  - Nail growth abnormal [Not Recovered/Not Resolved]
  - Blood glucose increased [Unknown]
  - Drug ineffective [Unknown]
  - Surgery [Unknown]
  - Cataract [Unknown]
  - Diplopia [Unknown]
  - Immune system disorder [Unknown]
